FAERS Safety Report 9095117 (Version 1)
Quarter: 2013Q1

REPORT INFORMATION
  Report Type: Report from Study
  Country: US (occurrence: US)
  Receive Date: 20130201
  Receipt Date: 20130201
  Transmission Date: 20140127
  Serious: No
  Sender: FDA-Public Use
  Company Number: US-ABBOTT-12P-163-1027761-00

PATIENT
  Age: 34 None
  Sex: Male

DRUGS (4)
  1. HUMIRA [Suspect]
     Indication: PSORIASIS
     Route: 058
     Dates: start: 201211, end: 201211
  2. HUMIRA [Suspect]
     Route: 058
     Dates: start: 201211
  3. ZYRTEC [Concomitant]
     Indication: ALLERGIC SINUSITIS
  4. VITAMIN C [Concomitant]
     Indication: ALLERGIC SINUSITIS

REACTIONS (3)
  - Cough [Not Recovered/Not Resolved]
  - Arthralgia [Not Recovered/Not Resolved]
  - Injection site haemorrhage [Recovered/Resolved]
